FAERS Safety Report 23828200 (Version 1)
Quarter: 2024Q2

REPORT INFORMATION
  Report Type: Report from Study
  Country: US (occurrence: US)
  Receive Date: 20240508
  Receipt Date: 20240508
  Transmission Date: 20240715
  Serious: Yes (Other)
  Sender: FDA-Public Use
  Company Number: US-ABBVIE-5747847

PATIENT
  Age: 59 Year
  Sex: Male

DRUGS (2)
  1. SKYRIZI [Suspect]
     Active Substance: RISANKIZUMAB-RZAA
     Indication: Psoriasis
     Dosage: LAST ADMIN DATE-2023
     Route: 058
     Dates: start: 202307
  2. SKYRIZI [Suspect]
     Active Substance: RISANKIZUMAB-RZAA
     Route: 058
     Dates: start: 202403

REACTIONS (4)
  - Upper limb fracture [Unknown]
  - Peripheral swelling [Unknown]
  - Pain [Unknown]
  - Post procedural infection [Unknown]

NARRATIVE: CASE EVENT DATE: 20230901
